FAERS Safety Report 23078952 (Version 1)
Quarter: 2023Q4

REPORT INFORMATION
  Report Type: Spontaneous
  Country: US (occurrence: None)
  Receive Date: 20231017
  Receipt Date: 20231017
  Transmission Date: 20240110
  Serious: Yes (Hospitalization)
  Sender: FDA-Public Use
  Company Number: None

PATIENT
  Age: 69 Year
  Sex: Male
  Weight: 60.3 kg

DRUGS (3)
  1. TISAGENLECLEUCEL [Suspect]
     Active Substance: TISAGENLECLEUCEL
     Indication: Follicular lymphoma
     Dosage: OTHER FREQUENCY : ONCE;?
     Route: 041
     Dates: start: 20220926, end: 20220926
  2. ACYCLOVIR [Concomitant]
     Active Substance: ACYCLOVIR
  3. POTASSIUM CHLORIDE [Concomitant]
     Active Substance: POTASSIUM CHLORIDE

REACTIONS (9)
  - Cytokine release syndrome [None]
  - Hyponatraemia [None]
  - Metabolic acidosis [None]
  - Pneumonia bacterial [None]
  - Infusion related reaction [None]
  - Hyperglycaemia [None]
  - Liver function test increased [None]
  - Hypoxia [None]
  - Haemophilus infection [None]

NARRATIVE: CASE EVENT DATE: 20220926
